FAERS Safety Report 26123098 (Version 1)
Quarter: 2025Q4

REPORT INFORMATION
  Report Type: Spontaneous
  Country: EU (occurrence: EU)
  Receive Date: 20251204
  Receipt Date: 20251204
  Transmission Date: 20260117
  Serious: Yes (Disabling)
  Sender: MYLAN
  Company Number: EU-DCGMA-25206151

PATIENT
  Sex: Male

DRUGS (4)
  1. TRAMADOL [Suspect]
     Active Substance: TRAMADOL
     Indication: Product used for unknown indication
     Dosage: UNK (3 ? 4 PUMP ACTUATIONS)
  2. TRAMADOL [Suspect]
     Active Substance: TRAMADOL
     Dosage: UNK (3 ? 4 PUMP ACTUATIONS)
     Route: 065
  3. TRAMADOL [Suspect]
     Active Substance: TRAMADOL
     Dosage: UNK (3 ? 4 PUMP ACTUATIONS)
     Route: 065
  4. TRAMADOL [Suspect]
     Active Substance: TRAMADOL
     Dosage: UNK (3 ? 4 PUMP ACTUATIONS)

REACTIONS (2)
  - Enamel anomaly [Unknown]
  - Pulpless tooth [Unknown]
